FAERS Safety Report 10169387 (Version 1)
Quarter: 2014Q2

REPORT INFORMATION
  Report Type: Spontaneous
  Country: ES (occurrence: CA)
  Receive Date: 20140513
  Receipt Date: 20140513
  Transmission Date: 20141212
  Serious: Yes (Hospitalization)
  Sender: FDA-Public Use
  Company Number: CA-FRI-1000067217

PATIENT
  Age: 62 Year
  Sex: Male
  Weight: 95.3 kg

DRUGS (1)
  1. ACLIDINIUM [Suspect]
     Indication: ASTHMA
     Dosage: 800 MCG
     Route: 055
     Dates: start: 20131118

REACTIONS (4)
  - Tachycardia [Recovered/Resolved]
  - Dyspnoea [Recovered/Resolved]
  - Chest pain [Recovered/Resolved]
  - Off label use [Recovered/Resolved]
